FAERS Safety Report 5493713-4 (Version None)
Quarter: 2007Q4

REPORT INFORMATION
  Report Type: 
  Country: None (occurrence: None)
  Receive Date: 20071015
  Receipt Date: 20070911
  Transmission Date: 20080405
  Serious: No
  Sender: FDA-Public Use
  Company Number: 2007SP003158

PATIENT
  Age: 77 Year
  Sex: Female
  Weight: 49.8957 kg

DRUGS (7)
  1. LUNESTA [Suspect]
     Indication: INSOMNIA
     Dosage: 2 MG;HS;ORAL
     Route: 048
     Dates: start: 20070901
  2. ATORVASTATIN CALCIUM [Concomitant]
  3. METOPROLOL SUCCINATE [Concomitant]
  4. ASPIRIN [Concomitant]
  5. BENICAR HCT [Concomitant]
  6. FOSAMAX [Concomitant]
  7. NITROFURANTOIN [Concomitant]

REACTIONS (2)
  - DYSGEUSIA [None]
  - MIDDLE INSOMNIA [None]
